FAERS Safety Report 23512678 (Version 2)
Quarter: 2024Q2

REPORT INFORMATION
  Report Type: Other
  Country: DK (occurrence: None)
  Receive Date: 20240212
  Receipt Date: 20240402
  Transmission Date: 20240716
  Serious: Yes (Hospitalization, Other)
  Sender: FDA-Public Use
  Company Number: DK-ROCHE-3506524

PATIENT

DRUGS (2)
  1. GLOFITAMAB [Suspect]
     Active Substance: GLOFITAMAB
     Indication: B-cell lymphoma
     Route: 042
  2. EPCORITAMAB [Suspect]
     Active Substance: EPCORITAMAB
     Indication: B-cell lymphoma
     Route: 065

REACTIONS (6)
  - Cytokine release syndrome [Unknown]
  - Varicella zoster virus infection [Unknown]
  - Leukaemia [Unknown]
  - Autoimmune colitis [Unknown]
  - COVID-19 [Unknown]
  - Hypogammaglobulinaemia [Unknown]
